FAERS Safety Report 5733558-0 (Version None)
Quarter: 2008Q2

REPORT INFORMATION
  Report Type: 
  Country: None (occurrence: None)
  Receive Date: 20080509
  Receipt Date: 20080428
  Transmission Date: 20081010
  Serious: Yes (Death, Life-Threatening)
  Sender: FDA-Public Use
  Company Number: JP-JNJFOC-20080405751

PATIENT
  Sex: Male
  Weight: 37 kg

DRUGS (14)
  1. ITRACONAZOLE [Suspect]
     Indication: BRONCHOPULMONARY ASPERGILLOSIS
     Route: 048
  2. ITRACONAZOLE [Concomitant]
     Route: 041
  3. ITRACONAZOLE [Concomitant]
     Indication: BRONCHOPULMONARY ASPERGILLOSIS
     Route: 041
  4. AMINOTRIPA NO 2 [Concomitant]
     Indication: NUTRITIONAL SUPPORT
     Route: 041
  5. BFLUID [Concomitant]
     Indication: NUTRITIONAL SUPPORT
     Route: 041
  6. DAIMEDIN_MULTI [Concomitant]
     Indication: NUTRITIONAL SUPPORT
     Route: 041
  7. MINERALIN [Concomitant]
     Indication: NUTRITIONAL SUPPORT
     Route: 041
  8. ZANTAC [Concomitant]
     Indication: GASTRITIS PROPHYLAXIS
     Route: 041
  9. NEOMINOPHAGEN C [Concomitant]
     Indication: HEPATIC FUNCTION ABNORMAL
     Route: 042
  10. SOLDEM 3A [Concomitant]
     Route: 041
  11. NEOPHYLLINE [Concomitant]
     Indication: BRONCHOSTENOSIS
     Route: 041
  12. PREDONINE [Concomitant]
     Indication: BRONCHOSTENOSIS
     Route: 041
  13. CIPROFLOXACIN [Concomitant]
     Indication: ANTIBIOTIC PROPHYLAXIS
     Route: 041
  14. ISOTONIC SODIUM CHLORIDE SOLUTION [Concomitant]
     Route: 041

REACTIONS (1)
  - PNEUMONIA ASPIRATION [None]
